FAERS Safety Report 21178262 (Version 2)
Quarter: 2022Q3

REPORT INFORMATION
  Report Type: Spontaneous
  Country: TW (occurrence: TW)
  Receive Date: 20220805
  Receipt Date: 20220809
  Transmission Date: 20221027
  Serious: Yes (Hospitalization, Other)
  Sender: FDA-Public Use
  Company Number: TW-MODERNATX, INC.-MOD-2022-592997

PATIENT
  Age: 52 Year
  Sex: Male

DRUGS (8)
  1. SIROLIMUS [Interacting]
     Active Substance: SIROLIMUS
     Indication: Immunosuppressant drug therapy
     Dosage: 1 DF, 1X/DAY
     Dates: start: 2008
  2. CYCLOSPORINE [Interacting]
     Active Substance: CYCLOSPORINE
     Indication: Immunosuppressant drug therapy
     Dosage: 1 DF, 2X/DAY
     Dates: start: 2008
  3. MYCOPHENOLATE SODIUM [Interacting]
     Active Substance: MYCOPHENOLATE SODIUM
     Indication: Immunosuppressant drug therapy
     Dosage: 1 DF, 2X/DAY
     Dates: start: 2008, end: 2021
  4. MYCOPHENOLATE SODIUM [Interacting]
     Active Substance: MYCOPHENOLATE SODIUM
     Dosage: 2 PIECES IN THE MORNING AND 1 PIECE IN THE EVENING
     Dates: start: 2021, end: 202112
  5. MYCOPHENOLATE SODIUM [Interacting]
     Active Substance: MYCOPHENOLATE SODIUM
     Dosage: 1 DF, 2X/DAY
     Dates: start: 202112
  6. METHYLPREDNISOLONE [Interacting]
     Active Substance: METHYLPREDNISOLONE
     Indication: Immunosuppressant drug therapy
     Dosage: 1 DF, 1X/DAY
     Dates: start: 2008
  7. MODERNA COVID-19 VACCINE [Interacting]
     Active Substance: ELASOMERAN
     Indication: COVID-19 immunisation
     Dosage: DOSE 1, SINGLE
     Dates: start: 20211119, end: 20211119
  8. MODERNA COVID-19 VACCINE [Interacting]
     Active Substance: ELASOMERAN
     Dosage: DOSE 2, SINGLE
     Dates: start: 20211223, end: 20211223

REACTIONS (4)
  - Pulmonary artery thrombosis [Recovering/Resolving]
  - Drug interaction [Recovered/Resolved]
  - Pulmonary embolism [Recovering/Resolving]
  - Deep vein thrombosis [Recovering/Resolving]

NARRATIVE: CASE EVENT DATE: 20220101
